FAERS Safety Report 7658657-8 (Version None)
Quarter: 2011Q3

REPORT INFORMATION
  Report Type: 
  Country: None (occurrence: None)
  Receive Date: 20110805
  Receipt Date: 20110725
  Transmission Date: 20111222
  Serious: Yes (Hospitalization)
  Sender: FDA-Public Use
  Company Number: US-BRISTOL-MYERS SQUIBB COMPANY-15921877

PATIENT
  Age: 37 Year
  Sex: Male

DRUGS (2)
  1. CALCIUM ACETATE [Suspect]
  2. WARFARIN SODIUM [Suspect]
     Route: 048
     Dates: start: 20070101

REACTIONS (2)
  - CALCIPHYLAXIS [None]
  - PULMONARY CALCIFICATION [None]
